FAERS Safety Report 8033576-6 (Version None)
Quarter: 2012Q1

REPORT INFORMATION
  Report Type: 
  Country: None (occurrence: None)
  Receive Date: 20120110
  Receipt Date: 20120106
  Transmission Date: 20120608
  Serious: No
  Sender: FDA-Public Use
  Company Number: US-TEVA-316465USA

PATIENT
  Sex: Female
  Weight: 54.934 kg

DRUGS (3)
  1. CENTRUM MULTI-VITAMIN [Concomitant]
     Indication: SUPPLEMENTATION THERAPY
  2. CALCIUM CARBONATE [Concomitant]
     Indication: SUPPLEMENTATION THERAPY
  3. PLAN B ONE-STEP [Suspect]
     Indication: POST COITAL CONTRACEPTION
     Dosage: 1.5 MILLIGRAM;
     Route: 048
     Dates: start: 20120101, end: 20120101

REACTIONS (4)
  - ABDOMINAL DISTENSION [None]
  - OEDEMA PERIPHERAL [None]
  - ABDOMINAL PAIN LOWER [None]
  - MENSTRUATION IRREGULAR [None]
